FAERS Safety Report 6141857-6 (Version None)
Quarter: 2009Q2

REPORT INFORMATION
  Report Type: 
  Country: None (occurrence: None)
  Receive Date: 20090402
  Receipt Date: 20090326
  Transmission Date: 20091009
  Serious: Yes (Other)
  Sender: FDA-Public Use
  Company Number: FR-AMGEN-UK334374

PATIENT
  Sex: Male
  Weight: 85 kg

DRUGS (5)
  1. VECTIBIX [Suspect]
     Indication: COLORECTAL CANCER
     Route: 042
     Dates: start: 20081208, end: 20090318
  2. DIAMICRON [Concomitant]
     Route: 065
  3. SIMVASTATIN [Concomitant]
     Route: 065
  4. BISOPROLOL FUMARATE AND HYDROCHLOROTHIAZIDE [Concomitant]
     Route: 065
  5. KARDEGIC [Concomitant]
     Route: 065

REACTIONS (4)
  - DRY EYE [None]
  - INGROWING NAIL [None]
  - PARONYCHIA [None]
  - ULCERATIVE KERATITIS [None]
